FAERS Safety Report 17498173 (Version 4)
Quarter: 2022Q3

REPORT INFORMATION
  Report Type: Spontaneous
  Country: US (occurrence: None)
  Receive Date: 20200304
  Receipt Date: 20220825
  Transmission Date: 20221026
  Serious: Yes (Hospitalization, Other)
  Sender: FDA-Public Use
  Company Number: 2019SE09260

PATIENT
  Age: 48 Year
  Sex: Female
  Weight: 114.8 kg

DRUGS (70)
  1. NEXIUM [Suspect]
     Active Substance: ESOMEPRAZOLE MAGNESIUM
     Indication: Gastrooesophageal reflux disease
     Route: 048
     Dates: start: 2000
  2. NEXIUM [Suspect]
     Active Substance: ESOMEPRAZOLE MAGNESIUM
     Indication: Gastrooesophageal reflux disease
     Route: 048
     Dates: start: 2006, end: 2011
  3. PRILOSEC [Suspect]
     Active Substance: OMEPRAZOLE MAGNESIUM
     Indication: Gastrooesophageal reflux disease
     Route: 048
     Dates: start: 1995
  4. PRILOSEC [Suspect]
     Active Substance: OMEPRAZOLE MAGNESIUM
     Indication: Gastrooesophageal reflux disease
     Dosage: GENERIC
     Route: 065
     Dates: start: 2006, end: 2011
  5. DEXILANT [Suspect]
     Active Substance: DEXLANSOPRAZOLE
     Indication: Gastrooesophageal reflux disease
     Route: 065
     Dates: start: 2000
  6. DEXILANT [Suspect]
     Active Substance: DEXLANSOPRAZOLE
     Indication: Gastrooesophageal reflux disease
     Route: 048
     Dates: start: 20111229
  7. DEXILANT [Suspect]
     Active Substance: DEXLANSOPRAZOLE
     Indication: Gastrooesophageal reflux disease
     Route: 048
     Dates: start: 20140204
  8. DEXILANT [Suspect]
     Active Substance: DEXLANSOPRAZOLE
     Indication: Gastrooesophageal reflux disease
     Dosage: 40-60 MG PER 1-2 TIMES DAILY
     Route: 065
     Dates: start: 2016
  9. PREVACID [Suspect]
     Active Substance: LANSOPRAZOLE
     Indication: Gastrooesophageal reflux disease
     Route: 065
     Dates: start: 2006, end: 2011
  10. PROTONIX [Suspect]
     Active Substance: PANTOPRAZOLE SODIUM
     Indication: Gastrooesophageal reflux disease
     Route: 065
     Dates: start: 2011, end: 2016
  11. METOPROLOL [Concomitant]
     Active Substance: METOPROLOL
  12. AMITRIPTYLINE [Concomitant]
     Active Substance: AMITRIPTYLINE
     Indication: Antidepressant therapy
     Route: 065
     Dates: start: 2013, end: 2018
  13. TYLENOL [Concomitant]
     Active Substance: ACETAMINOPHEN
  14. CRESTOR [Concomitant]
     Active Substance: ROSUVASTATIN CALCIUM
     Indication: Blood cholesterol increased
     Route: 065
     Dates: start: 2013, end: 2016
  15. ASPIRIN [Concomitant]
     Active Substance: ASPIRIN
     Indication: Pain
  16. COLACE [Concomitant]
     Active Substance: DOCUSATE SODIUM
  17. FLUTICASONE [Concomitant]
     Active Substance: FLUTICASONE
  18. LIDODERM [Concomitant]
     Active Substance: LIDOCAINE
  19. PROAIR HFA [Concomitant]
     Active Substance: ALBUTEROL SULFATE
  20. PROMETHAZINE [Concomitant]
     Active Substance: PROMETHAZINE HYDROCHLORIDE
  21. SALAGEN [Concomitant]
     Active Substance: PILOCARPINE HYDROCHLORIDE
  22. TRAMADOL [Concomitant]
     Active Substance: TRAMADOL
     Indication: Pain
  23. ZOLOFT [Concomitant]
     Active Substance: SERTRALINE HYDROCHLORIDE
  24. CIPROFLOXACIN [Concomitant]
     Active Substance: CIPROFLOXACIN
     Indication: Infection
     Route: 065
     Dates: start: 2014, end: 2016
  25. HYDROCHLOROTHIAZIDE [Concomitant]
     Active Substance: HYDROCHLOROTHIAZIDE
     Indication: Hypertension
     Route: 065
     Dates: start: 2015, end: 2017
  26. AVELOX [Concomitant]
     Active Substance: MOXIFLOXACIN HYDROCHLORIDE
     Indication: Infection
     Route: 065
     Dates: start: 2014
  27. AZITHROMYCIN [Concomitant]
     Active Substance: AZITHROMYCIN
     Indication: Infection
     Route: 065
     Dates: start: 2017
  28. LISINOPRIL [Concomitant]
     Active Substance: LISINOPRIL
     Indication: Hypertension
     Route: 065
     Dates: start: 2017, end: 2018
  29. OXAPROZIN [Concomitant]
     Active Substance: OXAPROZIN
     Indication: Pain
     Route: 065
     Dates: start: 2015, end: 2016
  30. VICODIN [Concomitant]
     Active Substance: ACETAMINOPHEN\HYDROCODONE BITARTRATE
     Route: 065
  31. LEVOFLOXACIN [Concomitant]
     Active Substance: LEVOFLOXACIN
     Indication: Infection
     Route: 065
     Dates: start: 2014, end: 2017
  32. SERTRALINE [Concomitant]
     Active Substance: SERTRALINE HYDROCHLORIDE
     Route: 065
  33. TEMAZEPAM [Concomitant]
     Active Substance: TEMAZEPAM
     Route: 065
  34. FAMOTIDINE [Concomitant]
     Active Substance: FAMOTIDINE
     Route: 065
  35. HYOSCYAMINE SULFATE [Concomitant]
     Active Substance: HYOSCYAMINE SULFATE
     Route: 065
  36. GABAPENTIN [Concomitant]
     Active Substance: GABAPENTIN
     Route: 065
  37. SUMATRIPTAN SUCCINATE [Concomitant]
     Active Substance: SUMATRIPTAN SUCCINATE
     Route: 065
  38. BUTALBITAL, ACETAMINOPHEN, AND CAFFEINE [Concomitant]
     Active Substance: ACETAMINOPHEN\BUTALBITAL\CAFFEINE
     Route: 065
  39. ATIVAN [Concomitant]
     Active Substance: LORAZEPAM
     Route: 065
  40. LYRICA [Concomitant]
     Active Substance: PREGABALIN
     Route: 065
  41. BACLOFEN [Concomitant]
     Active Substance: BACLOFEN
     Route: 065
  42. TIZANIDINE [Concomitant]
     Active Substance: TIZANIDINE
  43. LIDOCAINE [Concomitant]
     Active Substance: LIDOCAINE
  44. DICYCLOMINE [Concomitant]
     Active Substance: DICYCLOMINE HYDROCHLORIDE
  45. IRBESARTAN [Concomitant]
     Active Substance: IRBESARTAN
  46. AFLURIA NOS [Concomitant]
     Active Substance: INFLUENZA VIRUS VACCINE TRIVALENT TYPE A+B AFLURIA
  47. PILOCARPINE [Concomitant]
     Active Substance: PILOCARPINE
  48. PREGABALIN [Concomitant]
     Active Substance: PREGABALIN
  49. LEVSIN [Concomitant]
     Active Substance: HYOSCYAMINE SULFATE
  50. NITROGLYCERIN [Concomitant]
     Active Substance: NITROGLYCERIN
  51. ZANAFLEX [Concomitant]
     Active Substance: TIZANIDINE HYDROCHLORIDE
  52. PAMINE [Concomitant]
     Active Substance: METHSCOPOLAMINE BROMIDE
  53. BACTRIM [Concomitant]
     Active Substance: SULFAMETHOXAZOLE\TRIMETHOPRIM
  54. ELAVIL [Concomitant]
     Active Substance: AMITRIPTYLINE HYDROCHLORIDE
  55. TRIMETHOPRIM [Concomitant]
     Active Substance: TRIMETHOPRIM
  56. PHENAZOPYRIDINE [Concomitant]
     Active Substance: PHENAZOPYRIDINE
  57. FLUZONE [Concomitant]
     Active Substance: INFLUENZA A VIRUS A/CALIFORNIA/7/2009 X-179A (H1N1) ANTIGEN (FORMALDEHYDE INACTIVATED)\INFLUENZA A V
  58. KETOROLAC [Concomitant]
     Active Substance: KETOROLAC TROMETHAMINE
  59. DOCUSATE [Concomitant]
     Active Substance: DOCUSATE
  60. METOCLOPRAMIDE [Concomitant]
     Active Substance: METOCLOPRAMIDE
  61. PILOCARPINE [Concomitant]
     Active Substance: PILOCARPINE
  62. DIPHENHYDRAMINE [Concomitant]
     Active Substance: DIPHENHYDRAMINE
  63. BUMETANIDE [Concomitant]
     Active Substance: BUMETANIDE
  64. BUTALBITAL [Concomitant]
     Active Substance: BUTALBITAL
  65. ESCITALOPRAM [Concomitant]
     Active Substance: ESCITALOPRAM OXALATE
  66. MONTELUKAST [Concomitant]
     Active Substance: MONTELUKAST SODIUM
  67. SUMATRIPTAN [Concomitant]
     Active Substance: SUMATRIPTAN
  68. TIOTROPIUM [Concomitant]
     Active Substance: TIOTROPIUM
  69. CALCIUM CHLORIDE [Concomitant]
     Active Substance: CALCIUM CHLORIDE
  70. PERCOCET [Concomitant]
     Active Substance: ACETAMINOPHEN\OXYCODONE HYDROCHLORIDE

REACTIONS (6)
  - Chronic kidney disease [Not Recovered/Not Resolved]
  - Acute kidney injury [Not Recovered/Not Resolved]
  - Renal failure [Unknown]
  - Renal injury [Unknown]
  - Nephrogenic anaemia [Unknown]
  - Rebound acid hypersecretion [Unknown]

NARRATIVE: CASE EVENT DATE: 20100101
